FAERS Safety Report 16660841 (Version 1)
Quarter: 2019Q3

REPORT INFORMATION
  Report Type: Spontaneous
  Country: US (occurrence: US)
  Receive Date: 20190802
  Receipt Date: 20190802
  Transmission Date: 20191004
  Serious: No
  Sender: FDA-Public Use
  Company Number: US-MYLANLABS-2019M1068141

PATIENT
  Sex: Female
  Weight: 86 kg

DRUGS (2)
  1. ALBUTEROL EXTENDED-RELEASE TABLETS, USP [Suspect]
     Active Substance: ALBUTEROL
     Indication: CHRONIC OBSTRUCTIVE PULMONARY DISEASE
  2. ALBUTEROL EXTENDED-RELEASE TABLETS, USP [Suspect]
     Active Substance: ALBUTEROL
     Indication: ASTHMA
     Dosage: UNK
     Route: 048

REACTIONS (3)
  - Chest pain [Not Recovered/Not Resolved]
  - Hyperventilation [Not Recovered/Not Resolved]
  - Drug ineffective [Not Recovered/Not Resolved]
